FAERS Safety Report 12327787 (Version 1)
Quarter: 2016Q2

REPORT INFORMATION
  Report Type: Spontaneous
  Country: GB (occurrence: GB)
  Receive Date: 20160503
  Receipt Date: 20160503
  Transmission Date: 20160815
  Serious: Yes (Hospitalization)
  Sender: FDA-Public Use
  Company Number: GB-TEVA-656032ACC

PATIENT
  Age: 61 Year
  Sex: Male

DRUGS (12)
  1. FERROUS SULFATE. [Concomitant]
     Active Substance: FERROUS SULFATE
  2. ADCAL-D3 [Concomitant]
     Active Substance: CALCIUM CARBONATE\CHOLECALCIFEROL
  3. BUPRENORPHINE. [Concomitant]
     Active Substance: BUPRENORPHINE
  4. FOLIC ACID. [Concomitant]
     Active Substance: FOLIC ACID
  5. OMEPRAZOLE. [Concomitant]
     Active Substance: OMEPRAZOLE
  6. PREDNISOLONE. [Concomitant]
     Active Substance: PREDNISOLONE
  7. GAVISCON [Concomitant]
     Active Substance: ALUMINUM HYDROXIDE\MAGNESIUM CARBONATE
  8. TRAMADOL. [Concomitant]
     Active Substance: TRAMADOL
  9. VITAMIN B COMPLEX STRONG [Concomitant]
  10. ALENDRONIC ACID [Concomitant]
     Active Substance: ALENDRONIC ACID
  11. DULOXETINE. [Suspect]
     Active Substance: DULOXETINE
     Route: 048
  12. METHOTREXATE [Suspect]
     Active Substance: METHOTREXATE
     Route: 048

REACTIONS (3)
  - Liver function test abnormal [Recovering/Resolving]
  - Dyspnoea [Unknown]
  - Pulmonary congestion [Unknown]
